FAERS Safety Report 7399680-0 (Version None)
Quarter: 2011Q2

REPORT INFORMATION
  Report Type: 
  Country: None (occurrence: None)
  Receive Date: 20110407
  Receipt Date: 20110405
  Transmission Date: 20111010
  Serious: Yes (Hospitalization, Disabling, Other)
  Sender: FDA-Public Use
  Company Number: US-PFIZER INC-2010181798

PATIENT
  Sex: Male

DRUGS (7)
  1. TRIAMCINOLONE [Concomitant]
     Indication: STEROID THERAPY
  2. TRAZODONE [Concomitant]
     Indication: SLEEP DISORDER
     Dosage: UNK
     Dates: start: 20020101, end: 20080101
  3. CLINDAMYCIN [Concomitant]
     Indication: ANTIBIOTIC THERAPY
     Dosage: UNK
     Dates: start: 20050101, end: 20100101
  4. OXYCODONE [Concomitant]
     Indication: PAIN
     Dosage: UNK
     Dates: start: 20050101, end: 20090101
  5. CHLORHEXIDINE [Concomitant]
     Indication: GINGIVITIS
     Dosage: UNK
     Route: 048
     Dates: start: 20050101, end: 20080101
  6. TRIAMCINOLONE [Concomitant]
     Indication: ANTIINFLAMMATORY THERAPY
     Dosage: UNK
     Route: 061
     Dates: start: 20050101, end: 20080101
  7. CHANTIX [Suspect]
     Indication: SMOKING CESSATION THERAPY
     Dosage: 0.5 MG STARTER PACK AND 1 MG CONTINUOUS PACK
     Route: 048
     Dates: start: 20070103, end: 20080101

REACTIONS (2)
  - DEPRESSION [None]
  - SUICIDAL IDEATION [None]
